FAERS Safety Report 13243092 (Version 1)
Quarter: 2017Q1

REPORT INFORMATION
  Report Type: Spontaneous
  Country: US (occurrence: US)
  Receive Date: 20170216
  Receipt Date: 20170216
  Transmission Date: 20170428
  Serious: Yes (Disabling, Other)
  Sender: FDA-Public Use
  Company Number: None

PATIENT
  Age: 64 Year
  Sex: Female

DRUGS (6)
  1. HYDROCHLOROT [Concomitant]
     Active Substance: HYDROCHLOROTHIAZIDE
  2. XIIDRA [Suspect]
     Active Substance: LIFITEGRAST
     Indication: DRY EYE
     Dosage: ?          QUANTITY:0.2 DROP(S);?
     Route: 061
     Dates: start: 20170206, end: 20170210
  3. SYNTHROID [Concomitant]
     Active Substance: LEVOTHYROXINE SODIUM
  4. TRICORE [Concomitant]
  5. CALCIUM [Concomitant]
     Active Substance: CALCIUM
  6. RESTASIS [Concomitant]
     Active Substance: CYCLOSPORINE

REACTIONS (9)
  - Headache [None]
  - Quality of life decreased [None]
  - Hypersensitivity [None]
  - Dysgeusia [None]
  - Anxiety [None]
  - Corneal abrasion [None]
  - Pain [None]
  - Blindness [None]
  - Asthenopia [None]

NARRATIVE: CASE EVENT DATE: 20170206
